FAERS Safety Report 8046531-7 (Version None)
Quarter: 2012Q1

REPORT INFORMATION
  Report Type: 
  Country: None (occurrence: None)
  Receive Date: 20120113
  Receipt Date: 20120110
  Transmission Date: 20120608
  Serious: Yes (Hospitalization)
  Sender: FDA-Public Use
  Company Number: JP-MERCK-1201USA01511

PATIENT
  Age: 74 Year
  Sex: Male

DRUGS (3)
  1. AMARYL [Suspect]
     Route: 048
     Dates: start: 20111101, end: 20120101
  2. BASEN [Suspect]
     Route: 048
     Dates: start: 20111101, end: 20120101
  3. JANUVIA [Suspect]
     Route: 048
     Dates: start: 20111101, end: 20120101

REACTIONS (1)
  - HYPOGLYCAEMIA [None]
